FAERS Safety Report 8815400 (Version 2)
Quarter: 2012Q4

REPORT INFORMATION
  Report Type: 
  Country: US (occurrence: US)
  Receive Date: 20120928
  Receipt Date: 20121003
  Transmission Date: 20130627
  Serious: Yes (Life-Threatening)
  Sender: FDA-Public Use
  Company Number: US-009507513-1209USA011604

PATIENT
  Age: 63 Year
  Sex: Female
  Weight: 71.5 kg

DRUGS (12)
  1. VORINOSTAT [Suspect]
     Indication: DIFFUSE LARGE B-CELL LYMPHOMA
     Dosage: 400 mg, qd, on day 1-5
     Route: 048
     Dates: start: 20120307
  2. VORINOSTAT [Suspect]
     Dosage: 400 mg, qd, on day 1-5
     Route: 048
     Dates: start: 20120509, end: 20120513
  3. DOXORUBICIN [Suspect]
     Indication: DIFFUSE LARGE B-CELL LYMPHOMA
     Dosage: 50 mg/m2, Once
     Route: 042
     Dates: start: 20120309, end: 20120309
  4. DOXORUBICIN [Suspect]
     Dosage: 50 mg/m2, Once
     Route: 042
     Dates: start: 20120511, end: 20120511
  5. CYCLOPHOSPHAMIDE [Suspect]
     Indication: DIFFUSE LARGE B-CELL LYMPHOMA
     Dosage: 750 mg/m2, Once
     Route: 042
     Dates: start: 20120309, end: 20120309
  6. CYCLOPHOSPHAMIDE [Suspect]
     Dosage: 750 mg/m2, Once
     Route: 042
     Dates: start: 20120511, end: 20120511
  7. PREDNISONE [Suspect]
     Indication: DIFFUSE LARGE B-CELL LYMPHOMA
     Dosage: 100 mg, qd
     Route: 048
     Dates: start: 20120309, end: 20120313
  8. PREDNISONE [Suspect]
     Dosage: 100 mg, qd
     Route: 048
     Dates: start: 20120511, end: 20120515
  9. RITUXIMAB [Suspect]
     Indication: DIFFUSE LARGE B-CELL LYMPHOMA
     Dosage: 375 mg/m2, Once
     Route: 042
     Dates: start: 20120309, end: 20120309
  10. RITUXIMAB [Suspect]
     Dosage: 375 mg/m2, Once
     Route: 042
     Dates: start: 20120511, end: 20120511
  11. VINCRISTINE SULFATE [Suspect]
     Indication: DIFFUSE LARGE B-CELL LYMPHOMA
     Dosage: 1.4 mg/m2, Once
     Route: 042
     Dates: start: 20120309, end: 20120309
  12. VINCRISTINE SULFATE [Suspect]
     Dosage: 1.4 mg/m2, Once
     Route: 042
     Dates: start: 20120511, end: 20120511

REACTIONS (1)
  - Electrocardiogram PQ interval prolonged [Recovered/Resolved with Sequelae]
